FAERS Safety Report 7259891-1 (Version None)
Quarter: 2011Q1

REPORT INFORMATION
  Report Type: 
  Country: None (occurrence: None)
  Receive Date: 20110130
  Receipt Date: 20100901
  Transmission Date: 20110831
  Serious: No
  Sender: FDA-Public Use
  Company Number: US-ABBOTT-10P-163-0669218-00

PATIENT

DRUGS (1)
  1. HUMIRA [Suspect]
     Indication: CROHN'S DISEASE

REACTIONS (5)
  - PYREXIA [None]
  - CHILLS [None]
  - HUMAN ANTICHIMERIC ANTIBODY POSITIVE [None]
  - RASH [None]
  - C-REACTIVE PROTEIN INCREASED [None]
